FAERS Safety Report 8491149-5 (Version None)
Quarter: 2012Q3

REPORT INFORMATION
  Report Type: 
  Country: None (occurrence: None)
  Receive Date: 20120706
  Receipt Date: 20120702
  Transmission Date: 20120928
  Serious: Yes (Other)
  Sender: FDA-Public Use
  Company Number: US-BAYER-2012-066223

PATIENT
  Age: 23 Year
  Sex: Female
  Weight: 106 kg

DRUGS (9)
  1. DOXYCYCLINE [Concomitant]
     Dosage: 100 MG, UNK
     Dates: start: 20110424
  2. ZYRTEC [Concomitant]
     Dosage: EVERY DAY
     Route: 048
  3. DROSPIRENONE AND ETHINYL ESTRADIOL [Suspect]
  4. CLARITHROMYCIN [Concomitant]
     Dosage: 500 MG, UNK
     Dates: start: 20110321
  5. YAZ [Suspect]
  6. VERAMYST [Concomitant]
     Dosage: 27.5 ?G, UNK
     Route: 045
     Dates: start: 20110311
  7. MULTI-VITAMINS [Concomitant]
     Dosage: EVERY DAY
     Route: 048
  8. AMOXICILLIN [Concomitant]
     Dosage: 500 MG, UNK
     Dates: start: 20110408
  9. TRAMADOL HCL [Concomitant]
     Dosage: 50 MG, UNK
     Dates: start: 20110425

REACTIONS (1)
  - DEEP VEIN THROMBOSIS [None]
